FAERS Safety Report 7630807-9 (Version None)
Quarter: 2011Q3

REPORT INFORMATION
  Report Type: 
  Country: None (occurrence: None)
  Receive Date: 20110723
  Receipt Date: 20110714
  Transmission Date: 20111222
  Serious: Yes (Hospitalization)
  Sender: FDA-Public Use
  Company Number: DE-ABBOTT-11P-062-0836138-00

PATIENT
  Sex: Male
  Weight: 55 kg

DRUGS (9)
  1. HUMIRA [Suspect]
     Indication: RHEUMATOID ARTHRITIS
     Route: 058
     Dates: start: 20100531, end: 20110601
  2. CELEBREX [Concomitant]
     Indication: RHEUMATOID ARTHRITIS
     Dosage: 200, 1 IN 1 DAY
  3. KEPPRA [Concomitant]
     Indication: EPILEPSY
  4. CREON [Concomitant]
     Indication: PANCREATIC INSUFFICIENCY
     Dosage: UP TO 80000 IU PER DAY
  5. BISOPROLOL [Concomitant]
     Indication: PRODUCT USED FOR UNKNOWN INDICATION
  6. MIRTAZAPINE [Concomitant]
     Indication: DEPRESSION
  7. PANTOPRAZOLE [Concomitant]
     Indication: PRODUCT USED FOR UNKNOWN INDICATION
  8. IMIPRAMINE [Concomitant]
     Indication: DEPRESSION
  9. MESALAZIN [Concomitant]
     Indication: DIVERTICULITIS
     Route: 048

REACTIONS (1)
  - GAMMA-GLUTAMYLTRANSFERASE INCREASED [None]
